FAERS Safety Report 20019738 (Version 2)
Quarter: 2021Q4

REPORT INFORMATION
  Report Type: Spontaneous
  Country: US (occurrence: US)
  Receive Date: 20211101
  Receipt Date: 20211102
  Transmission Date: 20220303
  Serious: No
  Sender: FDA-Public Use
  Company Number: US-PFIZER INC-2021508433

PATIENT
  Age: 74 Year
  Sex: Male

DRUGS (2)
  1. XELJANZ XR [Suspect]
     Active Substance: TOFACITINIB CITRATE
     Dosage: 11 MG
  2. XELJANZ XR [Suspect]
     Active Substance: TOFACITINIB CITRATE
     Dosage: 11 MG, 1X/DAY(NINETY WITH ZERO REFILLS, TAKE 1 TABLET (11 MG) BY ORAL ROUTE ONCE DAILY)
     Route: 048

REACTIONS (2)
  - Device issue [Unknown]
  - Pain [Unknown]
